FAERS Safety Report 20088291 (Version 1)
Quarter: 2021Q4

REPORT INFORMATION
  Report Type: Spontaneous
  Country: US (occurrence: None)
  Receive Date: 20211118
  Receipt Date: 20211118
  Transmission Date: 20220303
  Serious: Yes (Death)
  Sender: FDA-Public Use
  Company Number: US-ROCHE-2960803

PATIENT
  Age: 64 Year
  Sex: Male

DRUGS (1)
  1. AVASTIN [Suspect]
     Active Substance: BEVACIZUMAB
     Indication: Colon cancer
     Dosage: STRENGTH: 100MG SDV
     Route: 042
     Dates: start: 20210714, end: 20210813

REACTIONS (1)
  - Death [Fatal]

NARRATIVE: CASE EVENT DATE: 20210813
